FAERS Safety Report 7739535-2 (Version None)
Quarter: 2011Q3

REPORT INFORMATION
  Report Type: 
  Country: None (occurrence: None)
  Receive Date: 20110909
  Receipt Date: 20110901
  Transmission Date: 20111222
  Serious: Yes (Death)
  Sender: FDA-Public Use
  Company Number: AU-NAPPMUNDI-USA-2011-0074402

PATIENT
  Sex: Male

DRUGS (2)
  1. BUPRENORPHINE [Suspect]
     Indication: OSTEOARTHRITIS
     Dosage: 10 MCG, Q1H
     Route: 062
  2. BUPRENORPHINE [Suspect]
     Dosage: 20 MCG, Q1H
     Route: 062
     Dates: start: 20110301, end: 20110301

REACTIONS (3)
  - MYOCARDIAL INFARCTION [None]
  - DIZZINESS [None]
  - SOMNOLENCE [None]
